FAERS Safety Report 6696213-9 (Version None)
Quarter: 2010Q2

REPORT INFORMATION
  Report Type: 
  Country: None (occurrence: None)
  Receive Date: 20100426
  Receipt Date: 20100406
  Transmission Date: 20101027
  Serious: Yes (Other)
  Sender: FDA-Public Use
  Company Number: CH-JNJFOC-20100400928

PATIENT
  Age: 31 Year
  Sex: Female

DRUGS (15)
  1. TOPAMAX [Suspect]
     Indication: DRUG USE FOR UNKNOWN INDICATION
     Route: 065
  2. MINERVA [Suspect]
     Indication: DRUG USE FOR UNKNOWN INDICATION
     Route: 065
  3. LEXOTANIL [Suspect]
     Indication: DRUG USE FOR UNKNOWN INDICATION
     Route: 065
  4. TRYPTIZOL [Suspect]
     Indication: DRUG USE FOR UNKNOWN INDICATION
     Route: 065
  5. NOVONORM [Suspect]
     Indication: DRUG USE FOR UNKNOWN INDICATION
     Route: 065
  6. CORGARD [Suspect]
     Indication: DRUG USE FOR UNKNOWN INDICATION
     Route: 065
  7. RIMACTANE [Suspect]
     Indication: DRUG USE FOR UNKNOWN INDICATION
     Route: 065
  8. RELPAX [Suspect]
     Indication: DRUG USE FOR UNKNOWN INDICATION
     Route: 065
  9. BACTRIM [Suspect]
     Indication: DRUG USE FOR UNKNOWN INDICATION
     Route: 065
  10. SLIM 10 [Suspect]
     Indication: DRUG USE FOR UNKNOWN INDICATION
     Route: 065
  11. ZOLDORM [Suspect]
     Indication: DRUG USE FOR UNKNOWN INDICATION
     Route: 065
  12. LYSINE [Suspect]
     Indication: DRUG USE FOR UNKNOWN INDICATION
     Route: 065
  13. XENICAL [Suspect]
     Indication: DRUG USE FOR UNKNOWN INDICATION
     Route: 065
  14. METFIN [Suspect]
     Indication: DRUG USE FOR UNKNOWN INDICATION
     Route: 065
  15. UNKNOWN MEDICATION [Suspect]
     Indication: DRUG USE FOR UNKNOWN INDICATION
     Route: 065

REACTIONS (2)
  - DRUG EXPOSURE DURING PREGNANCY [None]
  - INAPPROPRIATE SCHEDULE OF DRUG ADMINISTRATION [None]
